FAERS Safety Report 20299342 (Version 1)
Quarter: 2022Q1

REPORT INFORMATION
  Report Type: Spontaneous
  Country: US (occurrence: None)
  Receive Date: 20220104
  Receipt Date: 20220104
  Transmission Date: 20220423
  Serious: Yes (Hospitalization)
  Sender: FDA-Public Use
  Company Number: None

PATIENT
  Age: 55 Year
  Sex: Male
  Weight: 87.75 kg

DRUGS (12)
  1. XELODA [Suspect]
     Active Substance: CAPECITABINE
     Indication: Pancreatic carcinoma
     Dosage: OTHER FREQUENCY : BID FOR 14/21 DAYS;?
     Route: 048
     Dates: start: 20211218
  2. Marinol 5mg [Concomitant]
  3. FAMOTIDINE [Concomitant]
     Active Substance: FAMOTIDINE
  4. HEPARIN [Concomitant]
     Active Substance: HEPARIN SODIUM
  5. Dilaudid 2mg [Concomitant]
  6. Reglan 5mg [Concomitant]
  7. PANCRELIPASE [Concomitant]
     Active Substance: PANCRELIPASE
  8. Sucralfate 1gm [Concomitant]
  9. MORPHINE [Concomitant]
     Active Substance: MORPHINE
  10. OXYCODONE [Concomitant]
     Active Substance: OXYCODONE
  11. XANAX [Concomitant]
     Active Substance: ALPRAZOLAM
  12. Creon DR 12000-38000 units [Concomitant]

REACTIONS (1)
  - Neoplasm malignant [None]

NARRATIVE: CASE EVENT DATE: 20220104
